FAERS Safety Report 4288924-X (Version None)
Quarter: 2004Q1

REPORT INFORMATION
  Report Type: 
  Country: None (occurrence: None)
  Receive Date: 20040206
  Receipt Date: 20040123
  Transmission Date: 20041129
  Serious: Yes (Death)
  Sender: FDA-Public Use
  Company Number: S04-341-043

PATIENT
  Age: 54 Year
  Sex: Male
  Weight: 87 kg

DRUGS (1)
  1. VELCADE [Suspect]
     Indication: MANTLE CELL LYMPHOMA
     Dosage: 2.6 MG BIW, INTRAVENOUS BOLUS
     Route: 040
     Dates: start: 20040113, end: 20040120

REACTIONS (2)
  - ABDOMINAL PAIN [None]
  - PAIN IN EXTREMITY [None]
